FAERS Safety Report 11787285 (Version 1)
Quarter: 2015Q4

REPORT INFORMATION
  Report Type: Spontaneous
  Country: JP (occurrence: JP)
  Receive Date: 20151130
  Receipt Date: 20151130
  Transmission Date: 20160305
  Serious: Yes (Life-Threatening)
  Sender: FDA-Public Use
  Company Number: JP-BRACCO-009637

PATIENT
  Age: 79 Year
  Sex: Male

DRUGS (3)
  1. IOPAMIDOL [Suspect]
     Active Substance: IOPAMIDOL
     Indication: TRANSCATHETER ARTERIAL CHEMOEMBOLISATION
  2. LIPIODOL [Suspect]
     Active Substance: ETHIODIZED OIL
     Indication: TRANSCATHETER ARTERIAL CHEMOEMBOLISATION
  3. CARBOCAINE [Suspect]
     Active Substance: MEPIVACAINE HYDROCHLORIDE
     Indication: LOCAL ANAESTHESIA

REACTIONS (1)
  - Kounis syndrome [Recovered/Resolved]
